FAERS Safety Report 8996927 (Version 1)
Quarter: 2013Q1

REPORT INFORMATION
  Report Type: Spontaneous
  Country: US (occurrence: US)
  Receive Date: 20130104
  Receipt Date: 20130104
  Transmission Date: 20140127
  Serious: Yes (Hospitalization)
  Sender: FDA-Public Use
  Company Number: US-ASTRAZENECA-2012SE96047

PATIENT
  Age: 85 Year
  Sex: Female
  Weight: 95.3 kg

DRUGS (6)
  1. NEXIUM [Suspect]
     Route: 048
     Dates: start: 201209
  2. OMEPRAZOLE [Suspect]
     Indication: BLOOD GASTRIN INCREASED
     Route: 048
     Dates: end: 201206
  3. WATER PILL [Concomitant]
     Indication: DIURETIC THERAPY
  4. BABY ASPIRIN [Concomitant]
     Dates: start: 201206
  5. VITAMIN C [Concomitant]
  6. VITAMIN D [Concomitant]

REACTIONS (4)
  - Malaise [Unknown]
  - Dehydration [Recovered/Resolved]
  - Weight decreased [Not Recovered/Not Resolved]
  - Alopecia [Recovering/Resolving]
